FAERS Safety Report 19421915 (Version 1)
Quarter: 2021Q2

REPORT INFORMATION
  Report Type: Other
  Country: US (occurrence: US)
  Receive Date: 20210616
  Receipt Date: 20210616
  Transmission Date: 20210717
  Serious: Yes (Hospitalization, Other)
  Sender: FDA-Public Use
  Company Number: US-NATCO PHARMA LIMITED-2112787

PATIENT
  Age: 49 Year
  Sex: Male

DRUGS (11)
  1. ONDANSETRON HYDROCHLORIDE TABLETS, 4 MG AND 8 MG [Suspect]
     Active Substance: ONDANSETRON HYDROCHLORIDE
     Indication: VOMITING
     Route: 065
  2. FUROSEMIDE. [Interacting]
     Active Substance: FUROSEMIDE
  3. ROSUVASTATIN. [Concomitant]
     Active Substance: ROSUVASTATIN
     Route: 065
  4. FAMOTIDINE. [Interacting]
     Active Substance: FAMOTIDINE
     Route: 042
  5. SENNA ALEXANDRINA [Concomitant]
     Active Substance: SENNA LEAF
     Route: 065
  6. DILTIAZEM. [Interacting]
     Active Substance: DILTIAZEM
  7. IBUPROFEN. [Concomitant]
     Active Substance: IBUPROFEN
     Route: 065
  8. FOLIC ACID. [Concomitant]
     Active Substance: FOLIC ACID
     Route: 065
  9. ONDANSETRON HYDROCHLORIDE TABLETS, 4 MG AND 8 MG [Suspect]
     Active Substance: ONDANSETRON HYDROCHLORIDE
     Indication: NAUSEA
     Route: 065
  10. DOFETILIDE. [Interacting]
     Active Substance: DOFETILIDE
  11. LORAZEPAM. [Concomitant]
     Active Substance: LORAZEPAM
     Route: 065

REACTIONS (3)
  - Drug interaction [Recovered/Resolved]
  - Condition aggravated [Recovered/Resolved]
  - Electrocardiogram QT prolonged [Recovered/Resolved]
